FAERS Safety Report 6241858-3 (Version None)
Quarter: 2009Q2

REPORT INFORMATION
  Report Type: 
  Country: None (occurrence: None)
  Receive Date: 20090623
  Receipt Date: 20090612
  Transmission Date: 20091009
  Serious: Yes (Hospitalization, Other)
  Sender: FDA-Public Use
  Company Number: JP-PFIZER INC-2009176719

PATIENT
  Age: 79 Year

DRUGS (8)
  1. LIPITOR [Suspect]
     Indication: HYPERCHOLESTEROLAEMIA
     Dosage: 10 MG, 1X/DAY
     Route: 048
     Dates: start: 20081118, end: 20090218
  2. MIGLITOL [Suspect]
     Indication: TYPE 2 DIABETES MELLITUS
     Dosage: 50 MG, 3X/DAY
     Route: 048
     Dates: start: 20081127, end: 20090218
  3. PLAVIX [Suspect]
     Indication: ARTERIOSCLEROSIS
     Dosage: 75 MG, 1X/DAY
     Route: 048
     Dates: start: 20081127, end: 20081226
  4. FAMOTIDINE [Suspect]
     Indication: PROPHYLAXIS AGAINST GASTROINTESTINAL ULCER
     Dosage: 10 MG, 1X/DAY
     Route: 048
     Dates: start: 20081127, end: 20090218
  5. AMARYL [Suspect]
     Indication: TYPE 2 DIABETES MELLITUS
     Dosage: 1 MG, 1X/DAY
     Route: 048
     Dates: start: 20081130, end: 20090218
  6. ASPIRIN [Suspect]
     Indication: ARTERIOSCLEROSIS
     Dosage: 100 MG, 1X/DAY
     Route: 048
     Dates: start: 20081227, end: 20090218
  7. OPALMON [Suspect]
     Indication: SPINAL COLUMN STENOSIS
     Dosage: 1.66 UG, 3X/DAY
     Route: 048
     Dates: start: 20070101, end: 20090218
  8. LANTUS [Concomitant]
     Dosage: UNK
     Dates: start: 20081119

REACTIONS (1)
  - THROMBOCYTOPENIA [None]
